FAERS Safety Report 8853435 (Version 5)
Quarter: 2013Q2

REPORT INFORMATION
  Report Type: Spontaneous
  Country: FR (occurrence: FR)
  Receive Date: 20121022
  Receipt Date: 20130430
  Transmission Date: 20140414
  Serious: Yes (Other)
  Sender: FDA-Public Use
  Company Number: FR-GLAXOSMITHKLINE-B0741425A

PATIENT
  Sex: Female

DRUGS (20)
  1. REQUIP [Suspect]
     Indication: PARKINSON^S DISEASE
     Route: 048
     Dates: start: 200306
  2. REQUIP LP [Suspect]
     Indication: PARKINSON^S DISEASE
     Route: 048
     Dates: start: 201108
  3. SINEMET [Concomitant]
     Indication: PARKINSON^S DISEASE
     Route: 065
     Dates: start: 200606
  4. ATHYMIL [Concomitant]
     Dosage: 20MG AT NIGHT
     Route: 065
     Dates: start: 200606
  5. EQUANIL [Concomitant]
     Route: 065
     Dates: start: 200506
  6. MODOPAR [Concomitant]
     Indication: PARKINSON^S DISEASE
     Route: 065
     Dates: start: 200704
  7. COMTAN [Concomitant]
     Indication: PARKINSON^S DISEASE
     Route: 065
     Dates: start: 200704
  8. MOTILIUM [Concomitant]
     Route: 065
  9. RIVOTRIL [Concomitant]
     Route: 065
  10. ELECTRICAL STIMULATION OF NERVOUS SYSTEM [Concomitant]
     Dates: start: 20120922
  11. MANTADIX [Concomitant]
     Indication: PARKINSON^S DISEASE
     Dosage: 1TAB TWICE PER DAY
     Route: 065
     Dates: start: 200812
  12. EFFEXOR [Concomitant]
     Indication: ANXIETY
     Route: 065
     Dates: start: 200812
  13. LEXOMIL [Concomitant]
     Route: 065
     Dates: start: 200911
  14. DITROPAN [Concomitant]
     Route: 065
  15. TROSPIUM CHLORIDE [Concomitant]
     Route: 065
     Dates: start: 201106
  16. AZILECT [Concomitant]
     Indication: PARKINSON^S DISEASE
     Route: 065
     Dates: start: 201110
  17. POTASSIUM [Concomitant]
  18. INEXIUM [Concomitant]
  19. MIANSERINE [Concomitant]
  20. THIAMINE [Concomitant]
     Route: 065
     Dates: start: 2003

REACTIONS (16)
  - Pathological gambling [Recovering/Resolving]
  - Obsessive-compulsive disorder [Recovering/Resolving]
  - Prescribed overdose [Unknown]
  - Somnolence [Unknown]
  - Hallucinations, mixed [Not Recovered/Not Resolved]
  - Fall [Unknown]
  - Sleep disorder [Unknown]
  - Euphoric mood [Unknown]
  - Eating disorder [Recovering/Resolving]
  - Hallucination, olfactory [Unknown]
  - Orthostatic hypotension [Unknown]
  - Loss of consciousness [Recovered/Resolved]
  - Inappropriate schedule of drug administration [Unknown]
  - Malaise [Unknown]
  - Libido increased [Unknown]
  - Hypersexuality [Unknown]
